FAERS Safety Report 5599024-0 (Version None)
Quarter: 2008Q1

REPORT INFORMATION
  Report Type: 
  Country: None (occurrence: None)
  Receive Date: 20080122
  Receipt Date: 20080116
  Transmission Date: 20080703
  Serious: Yes (Hospitalization)
  Sender: FDA-Public Use
  Company Number: GB-BOEHRINGER INGELHEIM PHARMACEUTICALS, INC.-2007-DE-06617GD

PATIENT
  Age: 70 Year
  Sex: Male

DRUGS (7)
  1. TIOTROPIUM-BROMIDE [Suspect]
     Indication: CHRONIC OBSTRUCTIVE PULMONARY DISEASE
     Route: 055
     Dates: start: 20031119
  2. RANITIDINE [Concomitant]
  3. SALMETEROL XINAFOATE [Concomitant]
  4. PREDNISOLONE [Concomitant]
  5. MOVICOLON [Concomitant]
     Indication: FLATULENCE
  6. VENTOLIN [Concomitant]
  7. MOVICOL [Concomitant]

REACTIONS (6)
  - ABDOMINAL DISTENSION [None]
  - ABDOMINAL PAIN LOWER [None]
  - COLON CANCER STAGE III [None]
  - DECREASED APPETITE [None]
  - FLATULENCE [None]
  - WEIGHT DECREASED [None]
